FAERS Safety Report 20824428 (Version 1)
Quarter: 2022Q2

REPORT INFORMATION
  Report Type: Spontaneous
  Country: JP (occurrence: JP)
  Receive Date: 20220513
  Receipt Date: 20220513
  Transmission Date: 20220720
  Serious: Yes (Other)
  Sender: FDA-Public Use
  Company Number: JP-MLMSERVICE-20220207-3359776-1

PATIENT
  Age: 62 Year
  Sex: Male

DRUGS (2)
  1. ABRAXANE [Suspect]
     Active Substance: PACLITAXEL
     Indication: Pancreatic carcinoma
     Dosage: FREQUENCY TEXT: NOT PROVIDED?()CYCLICAL
     Route: 065
     Dates: start: 201907
  2. GEMCITABINE [Suspect]
     Active Substance: GEMCITABINE
     Indication: Pancreatic carcinoma
     Dosage: FREQUENCY TEXT: NOT PROVIDED?()CYCLICAL
     Route: 065
     Dates: start: 201907

REACTIONS (1)
  - Pulmonary toxicity [Unknown]

NARRATIVE: CASE EVENT DATE: 20190101
